FAERS Safety Report 12951888 (Version 1)
Quarter: 2016Q4

REPORT INFORMATION
  Report Type: Spontaneous
  Country: US (occurrence: US)
  Receive Date: 20161117
  Receipt Date: 20161117
  Transmission Date: 20170207
  Serious: Yes (Other)
  Sender: FDA-Public Use
  Company Number: US-AKORN PHARMACEUTICALS-2016AKN00675

PATIENT
  Sex: Female

DRUGS (1)
  1. MYORISAN [Suspect]
     Active Substance: ISOTRETINOIN
     Dosage: 20 MG, 2X/DAY
     Dates: start: 20160902, end: 2016

REACTIONS (5)
  - Diarrhoea [Unknown]
  - Skin discolouration [Unknown]
  - Acne [Unknown]
  - Depressed mood [Unknown]
  - Anger [Unknown]

NARRATIVE: CASE EVENT DATE: 2016
